FAERS Safety Report 14855662 (Version 1)
Quarter: 2018Q2

REPORT INFORMATION
  Report Type: Spontaneous
  Country: US (occurrence: US)
  Receive Date: 20180507
  Receipt Date: 20180507
  Transmission Date: 20180711
  Serious: No
  Sender: FDA-Public Use
  Company Number: US-ROCHE-1911104

PATIENT
  Age: 72 Year

DRUGS (3)
  1. ESBRIET [Suspect]
     Active Substance: PIRFENIDONE
     Indication: IDIOPATHIC PULMONARY FIBROSIS
     Route: 048
     Dates: start: 201511
  2. OFEV [Concomitant]
     Active Substance: NINTEDANIB
     Route: 065
     Dates: start: 201511
  3. OXYGEN. [Concomitant]
     Active Substance: OXYGEN
     Route: 065
     Dates: start: 2014

REACTIONS (1)
  - Photosensitivity reaction [Unknown]
